FAERS Safety Report 11229990 (Version 2)
Quarter: 2015Q3

REPORT INFORMATION
  Report Type: Spontaneous
  Country: FI (occurrence: FI)
  Receive Date: 20150701
  Receipt Date: 20150909
  Transmission Date: 20151125
  Serious: Yes (Other)
  Sender: FDA-Public Use
  Company Number: FI-AMGEN-FINSP2015062355

PATIENT
  Age: 67 Year
  Sex: Female
  Weight: 65 kg

DRUGS (18)
  1. LYRICA [Concomitant]
     Active Substance: PREGABALIN
     Indication: PRURITUS
     Dosage: 25 MG, UNK, 1X2
     Route: 048
     Dates: start: 20150602
  2. RENAVIT [Concomitant]
     Indication: DIALYSIS
  3. MINISUN [Concomitant]
     Dosage: 20 MUG, UNK
  4. THYROXIN [Concomitant]
     Active Substance: LEVOTHYROXINE
     Dosage: 0.1 MG, UNK
  5. PRIMASPAN [Concomitant]
     Dosage: 100 MG, UNK
  6. AMLODIPIN                          /00972401/ [Concomitant]
     Active Substance: AMLODIPINE BESYLATE
     Indication: HYPERTENSION
     Dosage: 5 MG, UNK, 1X1
     Route: 048
     Dates: start: 20121219
  7. ATACAND [Concomitant]
     Active Substance: CANDESARTAN CILEXETIL
     Indication: HYPERTENSION
     Dosage: 16 MG, UNK, 1X1
     Route: 048
     Dates: start: 20121219
  8. ATORVASTATIN ORION [Concomitant]
     Active Substance: ATORVASTATIN CALCIUM
  9. EPO                                /00909301/ [Concomitant]
     Active Substance: ERYTHROPOIETIN
     Dosage: 300 MUG, UNK
     Dates: start: 20130815
  10. RENVELA [Concomitant]
     Active Substance: SEVELAMER CARBONATE
  11. VENOTREX                           /00055501/ [Concomitant]
     Dosage: 100 MG, Q2WK, IN DIALYSIS
     Route: 042
  12. FRAGMIN [Concomitant]
     Active Substance: DALTEPARIN SODIUM
     Indication: DIALYSIS
     Dosage: 5000 IU, UNK,IN DIALYSIS
     Route: 042
     Dates: start: 20141203
  13. ARANESP [Suspect]
     Active Substance: DARBEPOETIN ALFA
     Indication: PRODUCT USED FOR UNKNOWN INDICATION
     Dosage: 50 MUG, UNK, EVERY 5 DAYS
     Route: 058
     Dates: start: 201312
  14. ORLOC [Concomitant]
     Active Substance: BISOPROLOL FUMARATE
     Dosage: 5 MG, UNK
  15. ZOPINOX [Concomitant]
     Active Substance: ZOPICLONE
     Dosage: 7.5 MG, AS NECESSARY
  16. LASIX [Concomitant]
     Active Substance: FUROSEMIDE
     Indication: RENAL DISORDER
     Dosage: 180 MG, UNK, 1X2
     Route: 048
     Dates: start: 20040129
  17. PRIMPERAN [Concomitant]
     Active Substance: METOCLOPRAMIDE HYDROCHLORIDE
     Dosage: 10 MG, AS NECESSARY
  18. CALCICHEW D3 FORTE [Concomitant]
     Active Substance: CALCIUM\CHOLECALCIFEROL

REACTIONS (7)
  - Aplasia pure red cell [Unknown]
  - Haemoglobin decreased [Not Recovered/Not Resolved]
  - Drug effect decreased [Unknown]
  - Hypothyroidism [Unknown]
  - Dialysis [Unknown]
  - Dyslipidaemia [Unknown]
  - Hypergammaglobulinaemia benign monoclonal [Unknown]

NARRATIVE: CASE EVENT DATE: 20141203
